FAERS Safety Report 5915982-6 (Version None)
Quarter: 2008Q4

REPORT INFORMATION
  Report Type: 
  Country: None (occurrence: None)
  Receive Date: 20081013
  Receipt Date: 20081003
  Transmission Date: 20090506
  Serious: Yes (Hospitalization)
  Sender: FDA-Public Use
  Company Number: FR-JNJFOC-20061001043

PATIENT
  Sex: Female
  Weight: 60 kg

DRUGS (12)
  1. LEUSTATIN [Suspect]
     Route: 042
  2. LEUSTATIN [Suspect]
     Indication: SYSTEMIC MASTOCYTOSIS
     Route: 042
  3. BACTRIM FAIBLE [Concomitant]
  4. ZELITREX [Concomitant]
  5. NEULASTA [Concomitant]
  6. SPECIAFOLDINE [Concomitant]
  7. CACIT VITAMIN D3 [Concomitant]
  8. FOSAMAX [Concomitant]
  9. INIPOMP [Concomitant]
  10. NOXAFIL [Concomitant]
  11. VITAMIN B-12 [Concomitant]
  12. FUMAFER [Concomitant]

REACTIONS (10)
  - ACCIDENTAL OVERDOSE [None]
  - ASTHENIA [None]
  - HEADACHE [None]
  - INFLAMMATION [None]
  - INSOMNIA [None]
  - MEDICATION ERROR [None]
  - NAUSEA [None]
  - OROPHARYNGEAL PAIN [None]
  - PAIN [None]
  - PAIN IN JAW [None]
